FAERS Safety Report 7333661-8 (Version None)
Quarter: 2011Q1

REPORT INFORMATION
  Report Type: 
  Country: None (occurrence: None)
  Receive Date: 20110306
  Receipt Date: 20110223
  Transmission Date: 20110831
  Serious: Yes (Hospitalization)
  Sender: FDA-Public Use
  Company Number: US-ELI_LILLY_AND_COMPANY-US200906004316

PATIENT
  Sex: Female

DRUGS (9)
  1. FORTEO [Suspect]
     Indication: OSTEOPOROSIS
     Dosage: 20 UG, DAILY (1/D)
     Dates: start: 20090401
  2. FORTEO [Suspect]
     Dosage: 20 UG, UNK
  3. BENICAR [Concomitant]
     Dosage: 40 MG, UNKNOWN
     Route: 065
  4. CORTIZONE [Concomitant]
     Dosage: 10 MG, UNKNOWN
     Route: 065
  5. FLUDROCORTISON [Concomitant]
     Dosage: UNK, UNKNOWN
     Route: 065
  6. PRESERVISION LUTEIN EYE VITA.+MIN.SUP.SOFTG. [Concomitant]
     Dosage: UNK, UNKNOWN
     Route: 065
  7. SYNTHROID [Concomitant]
     Dosage: 0.122 MG, UNKNOWN
     Route: 065
  8. ESTER-C [Concomitant]
     Dosage: UNK, UNKNOWN
     Route: 065
  9. CALCIUM CITRATE [Concomitant]
     Dosage: 250 MG, 4/D
     Route: 065

REACTIONS (9)
  - MALAISE [None]
  - ASTHENIA [None]
  - FOOD POISONING [None]
  - DEHYDRATION [None]
  - ABDOMINAL DISCOMFORT [None]
  - BRONCHITIS [None]
  - URINARY TRACT INFECTION [None]
  - PULMONARY CONGESTION [None]
  - PAIN IN EXTREMITY [None]
